FAERS Safety Report 9074785 (Version 1)
Quarter: 2013Q1

REPORT INFORMATION
  Report Type: Spontaneous
  Country: US (occurrence: US)
  Receive Date: 20130129
  Receipt Date: 20130129
  Transmission Date: 20140127
  Serious: No
  Sender: FDA-Public Use
  Company Number: US-ABBOTT-13P-163-1030203-00

PATIENT
  Sex: Female

DRUGS (1)
  1. LUPRON DEPOT [Suspect]
     Indication: PRODUCT USED FOR UNKNOWN INDICATION

REACTIONS (7)
  - Malaise [Unknown]
  - Anxiety [Unknown]
  - Dyspnoea [Unknown]
  - Deja vu [Unknown]
  - Confusional state [Unknown]
  - Chest discomfort [Unknown]
  - Micturition urgency [Unknown]
